FAERS Safety Report 8830122 (Version 1)
Quarter: 2012Q4

REPORT INFORMATION
  Report Type: 
  Country: US (occurrence: US)
  Receive Date: 20121008
  Receipt Date: 20121008
  Transmission Date: 20130627
  Serious: Yes (Other)
  Sender: FDA-Public Use
  Company Number: US-VERTEX PHARMACEUTICAL INC.-2012-022150

PATIENT
  Sex: Male
  Weight: 98 kg

DRUGS (10)
  1. VX-950 [Suspect]
     Indication: HEPATITIS C
     Dosage: 750 mg, tid
     Route: 048
     Dates: start: 20120709
  2. PEGASYS [Suspect]
     Indication: HEPATITIS C
     Dosage: 180 ?g, UNK
     Route: 058
     Dates: start: 20120709
  3. RIBASPHERE [Suspect]
     Indication: HEPATITIS C
     Dosage: 600 mg, qd
     Route: 048
     Dates: start: 20120709, end: 201208
  4. RIBASPHERE [Suspect]
     Dosage: UNK
  5. AMLODIPINE BESYLATE [Concomitant]
     Dosage: 1 DF, qd
     Route: 048
  6. FUROSEMIDE [Concomitant]
     Dosage: 1 DF, qd
     Route: 048
  7. PAROXETINE HCL [Concomitant]
     Dosage: 1 DF, qd
     Route: 048
  8. LISINOPRIL HCTZ [Concomitant]
     Dosage: 1 DF, qd
     Route: 048
  9. CLONIDINE [Concomitant]
     Dosage: 1 DF, qd
     Route: 048
  10. COLCRYS [Concomitant]
     Dosage: 1 DF, qd
     Route: 048

REACTIONS (3)
  - Anaemia [Unknown]
  - Depression [Unknown]
  - Pruritus generalised [None]
